FAERS Safety Report 4646049-5 (Version None)
Quarter: 2005Q2

REPORT INFORMATION
  Report Type: 
  Country: None (occurrence: None)
  Receive Date: 20050422
  Receipt Date: 20050422
  Transmission Date: 20051028
  Serious: Yes (Other)
  Sender: FDA-Public Use
  Company Number: None

PATIENT
  Age: 57 Year
  Sex: Male
  Weight: 90.6 kg

DRUGS (1)
  1. SUCCINYLCHOLINE [Suspect]

REACTIONS (3)
  - EYE SWELLING [None]
  - HYPOTENSION [None]
  - SWELLING FACE [None]
